FAERS Safety Report 23501951 (Version 2)
Quarter: 2024Q1

REPORT INFORMATION
  Report Type: Spontaneous
  Country: US (occurrence: US)
  Receive Date: 20240208
  Receipt Date: 20240220
  Transmission Date: 20240410
  Serious: Yes (Other)
  Sender: FDA-Public Use
  Company Number: US-PFIZER INC-PV202400017455

PATIENT
  Age: 67 Year
  Sex: Male

DRUGS (2)
  1. INLYTA [Suspect]
     Active Substance: AXITINIB
     Dosage: UNK
     Dates: start: 202312
  2. INLYTA [Suspect]
     Active Substance: AXITINIB
     Dosage: ONE TABLET DAILY

REACTIONS (2)
  - Hypertension [Unknown]
  - Fatigue [Unknown]
